FAERS Safety Report 7006834-1 (Version None)
Quarter: 2010Q3

REPORT INFORMATION
  Report Type: 
  Country: None (occurrence: None)
  Receive Date: 20100922
  Receipt Date: 20100915
  Transmission Date: 20110219
  Serious: No
  Sender: FDA-Public Use
  Company Number: US-BIOGENIDEC-2010BI030084

PATIENT
  Sex: Female
  Weight: 98 kg

DRUGS (3)
  1. AVONEX [Suspect]
     Indication: MULTIPLE SCLEROSIS
     Route: 030
     Dates: start: 20000401, end: 20050101
  2. AVONEX [Suspect]
     Route: 030
     Dates: start: 20050101, end: 20080101
  3. AVONEX [Suspect]
     Route: 030
     Dates: start: 20090101

REACTIONS (9)
  - CONCUSSION [None]
  - CONFUSIONAL STATE [None]
  - CYSTITIS [None]
  - DIZZINESS [None]
  - FALL [None]
  - INFECTION [None]
  - MULTIPLE SCLEROSIS RELAPSE [None]
  - SINUSITIS [None]
  - VOMITING [None]
